FAERS Safety Report 10722110 (Version 1)
Quarter: 2015Q1

REPORT INFORMATION
  Report Type: Spontaneous
  Country: NO (occurrence: NO)
  Receive Date: 20150119
  Receipt Date: 20150119
  Transmission Date: 20150721
  Serious: Yes (Other)
  Sender: FDA-Public Use
  Company Number: CHPA2015NO000590

PATIENT
  Age: 40 Year
  Sex: Female

DRUGS (1)
  1. NICOTINELL [Suspect]
     Active Substance: NICOTINE
     Indication: PRODUCT USED FOR UNKNOWN INDICATION
     Dosage: 20 DF, DAILY
     Route: 065
     Dates: end: 20141231

REACTIONS (3)
  - Incorrect drug administration duration [Unknown]
  - Muscle twitching [Unknown]
  - Drug dependence [Recovered/Resolved]

NARRATIVE: CASE EVENT DATE: 20150101
